FAERS Safety Report 7534745-1 (Version None)
Quarter: 2011Q2

REPORT INFORMATION
  Report Type: 
  Country: None (occurrence: None)
  Receive Date: 20110609
  Receipt Date: 20080725
  Transmission Date: 20111010
  Serious: Yes (Death, Other)
  Sender: FDA-Public Use
  Company Number: PHHY2008CA07997

PATIENT
  Sex: Male

DRUGS (5)
  1. ASPIRIN [Concomitant]
     Dosage: 80 MG, UNK
  2. INSULIN [Concomitant]
  3. LIPITOR [Concomitant]
     Dosage: 10 MG, QHS
  4. CLOZAPINE [Suspect]
     Indication: SCHIZOPHRENIA
     Dosage: 475 MG, QD
     Route: 048
     Dates: start: 20071122
  5. TYLENOL PM [Concomitant]

REACTIONS (6)
  - GAIT DISTURBANCE [None]
  - SKIN DISCOLOURATION [None]
  - LOSS OF CONSCIOUSNESS [None]
  - DEATH [None]
  - MALAISE [None]
  - INFARCTION [None]
